FAERS Safety Report 23110344 (Version 1)
Quarter: 2023Q4

REPORT INFORMATION
  Report Type: Spontaneous
  Country: US (occurrence: None)
  Receive Date: 20231024
  Receipt Date: 20231024
  Transmission Date: 20240109
  Serious: Yes (Hospitalization)
  Sender: FDA-Public Use
  Company Number: None

PATIENT
  Sex: Male
  Weight: 99.7 kg

DRUGS (1)
  1. QUETIAPINE FUMARATE [Suspect]
     Active Substance: QUETIAPINE FUMARATE
     Dosage: FREQUENCY : AT BEDTIME?
     Route: 048
     Dates: start: 20210701

REACTIONS (8)
  - Hallucination [None]
  - Confusional state [None]
  - Atrial fibrillation [None]
  - Agitation [None]
  - Brain natriuretic peptide increased [None]
  - Encephalopathy [None]
  - Overdose [None]
  - Urinary tract infection [None]

NARRATIVE: CASE EVENT DATE: 20210714
